FAERS Safety Report 5578251-2 (Version None)
Quarter: 2007Q4

REPORT INFORMATION
  Report Type: 
  Country: None (occurrence: None)
  Receive Date: 20071231
  Receipt Date: 20071220
  Transmission Date: 20080405
  Serious: Yes (Hospitalization, Other)
  Sender: FDA-Public Use
  Company Number: US-PFIZER INC-2007107052

PATIENT
  Sex: Female

DRUGS (5)
  1. GEODON [Suspect]
     Indication: BIPOLAR DISORDER
  2. KLONOPIN [Concomitant]
     Dosage: FREQ:AS NEEDED
  3. LITHIUM [Concomitant]
  4. WELLBUTRIN XL [Concomitant]
  5. YASMIN [Concomitant]

REACTIONS (6)
  - AGITATION [None]
  - CONDITION AGGRAVATED [None]
  - CONSTIPATION [None]
  - DRUG EFFECT DECREASED [None]
  - LIMB INJURY [None]
  - PARANOIA [None]
